FAERS Safety Report 25952676 (Version 1)
Quarter: 2025Q4

REPORT INFORMATION
  Report Type: Spontaneous
  Country: JP (occurrence: JP)
  Receive Date: 20251023
  Receipt Date: 20251023
  Transmission Date: 20260117
  Serious: Yes (Other)
  Sender: REGENERON
  Company Number: JP-BAYER-2025A138289

PATIENT

DRUGS (1)
  1. EYLEA [Suspect]
     Active Substance: AFLIBERCEPT
     Indication: Age-related macular degeneration
     Dosage: 0.07 ML, ONCE, SOLUTION FOR INJECTION IN PRE-FILLED SYRINGE, 114.3 MG/ML

REACTIONS (1)
  - Choroidal rupture [Not Recovered/Not Resolved]

NARRATIVE: CASE EVENT DATE: 20251018
